FAERS Safety Report 8803270 (Version 1)
Quarter: 2012Q4

REPORT INFORMATION
  Report Type: Report from Study
  Country: CA (occurrence: CA)
  Receive Date: 20120924
  Receipt Date: 20120924
  Transmission Date: 20130627
  Serious: Yes (Other)
  Sender: FDA-Public Use
  Company Number: CA-JNJFOC-20120904523

PATIENT
  Age: 61 Year
  Sex: Female
  Weight: 73.03 kg

DRUGS (3)
  1. REMICADE [Suspect]
     Indication: COLITIS ULCERATIVE
     Route: 042
     Dates: start: 2007
  2. INSULIN [Concomitant]
     Route: 065
  3. PLAVIX [Concomitant]
     Route: 065

REACTIONS (1)
  - Stent placement [Unknown]
